FAERS Safety Report 7564289-2 (Version None)
Quarter: 2011Q2

REPORT INFORMATION
  Report Type: 
  Country: None (occurrence: None)
  Receive Date: 20110622
  Receipt Date: 20110609
  Transmission Date: 20111010
  Serious: Yes (Hospitalization, Other)
  Sender: FDA-Public Use
  Company Number: PHEH2008US04569

PATIENT
  Sex: Female

DRUGS (50)
  1. DIFLUCAN [Concomitant]
  2. PAXIL [Concomitant]
  3. METHADONE HCL [Concomitant]
  4. VIOXX [Concomitant]
  5. ERYTHROMYCIN [Concomitant]
  6. CEPHALEXIN [Concomitant]
  7. METHADOSE [Concomitant]
  8. PREVACID [Concomitant]
  9. ZITHROMAX [Concomitant]
  10. ZOMETA [Suspect]
  11. CIPROFLOXACIN [Concomitant]
  12. PAROXETINE HCL [Concomitant]
  13. CHLORHEXIDINE GLUCONATE [Concomitant]
  14. CEFDINIR [Concomitant]
  15. PROMETHAZINE [Concomitant]
  16. BIAXIN XL [Concomitant]
  17. LANSOPRAZOLE [Concomitant]
  18. LEVOTHYROXINE SODIUM [Concomitant]
  19. NICOTINE [Concomitant]
  20. LEVOXYL [Concomitant]
  21. LORABID [Concomitant]
  22. PROTONIX [Concomitant]
  23. RANITIDINE [Concomitant]
  24. OMNICEF [Concomitant]
  25. CLARITHROMYCIN [Concomitant]
  26. ANZEMET [Concomitant]
  27. MORPHINE [Concomitant]
  28. FERANCEE [Concomitant]
  29. CIPRO [Concomitant]
  30. METRONIDAZOLE [Concomitant]
  31. BUSPIRONE HCL [Concomitant]
  32. TRAMADOL HCL [Concomitant]
  33. SYNTHROID [Concomitant]
  34. OXYCODONE HCL [Concomitant]
  35. IBUPROFEN [Concomitant]
  36. APAP W/ CODEINE [Concomitant]
  37. ESTRADIOL [Concomitant]
  38. ACETAMINOPHEN AND HYDROCODONE BITARTRATE [Concomitant]
  39. CEFACLOR [Concomitant]
  40. LORAZEPAM [Concomitant]
  41. AREDIA [Suspect]
     Dosage: MONTHLY
  42. VANCOMYCIN [Concomitant]
  43. LOVENOX [Concomitant]
  44. WARFARIN SODIUM [Concomitant]
  45. LORTAB [Concomitant]
  46. PROCHLORPERAZINE TAB [Concomitant]
  47. LEVAQUIN [Concomitant]
  48. GUIATUSS [Concomitant]
  49. OFLOXACIN [Concomitant]
  50. SECONAL [Concomitant]

REACTIONS (54)
  - CELLULITIS [None]
  - BONE EROSION [None]
  - PAIN IN EXTREMITY [None]
  - HEADACHE [None]
  - TENDON DISORDER [None]
  - OTITIS MEDIA ACUTE [None]
  - OROPHARYNGEAL PAIN [None]
  - PRODUCTIVE COUGH [None]
  - SWELLING FACE [None]
  - ADNEXA UTERI MASS [None]
  - NASAL CONGESTION [None]
  - PAIN IN JAW [None]
  - INTERVERTEBRAL DISC DEGENERATION [None]
  - MASS [None]
  - BACK PAIN [None]
  - EAR PAIN [None]
  - GASTROOESOPHAGEAL REFLUX DISEASE [None]
  - OSTEONECROSIS OF JAW [None]
  - PAIN [None]
  - OPEN WOUND [None]
  - TOOTH INFECTION [None]
  - OSTEITIS [None]
  - HYPOAESTHESIA ORAL [None]
  - POLYCYSTIC OVARIES [None]
  - PELVIC MASS [None]
  - SPINAL OSTEOARTHRITIS [None]
  - RASH MACULO-PAPULAR [None]
  - SINUSITIS [None]
  - OVARIAN CYST [None]
  - INJURY [None]
  - ANHEDONIA [None]
  - DISABILITY [None]
  - LYMPHADENOPATHY [None]
  - UPPER RESPIRATORY TRACT INFECTION [None]
  - CHILLS [None]
  - BONE SWELLING [None]
  - RADICULITIS LUMBOSACRAL [None]
  - SCIATICA [None]
  - CARPAL TUNNEL SYNDROME [None]
  - ECZEMA [None]
  - ANXIETY [None]
  - DENTAL CARIES [None]
  - AMENORRHOEA [None]
  - DYSFUNCTIONAL UTERINE BLEEDING [None]
  - PARAESTHESIA [None]
  - HYPOAESTHESIA FACIAL [None]
  - MUSCLE SPASMS [None]
  - VAGINITIS BACTERIAL [None]
  - ADENOMYOSIS [None]
  - INGROWING NAIL [None]
  - PARONYCHIA [None]
  - ONYCHOMYCOSIS [None]
  - ARTHRALGIA [None]
  - PHARYNGITIS [None]
